FAERS Safety Report 9472225 (Version 1)
Quarter: 2013Q3

REPORT INFORMATION
  Report Type: Spontaneous
  Country: US (occurrence: None)
  Receive Date: 20130821
  Receipt Date: 20130821
  Transmission Date: 20140515
  Serious: No
  Sender: FDA-Public Use
  Company Number: None

PATIENT
  Age: 35 Year
  Sex: Female
  Weight: 113.4 kg

DRUGS (1)
  1. TUBERSOL [Suspect]

REACTIONS (7)
  - Tuberculin test positive [None]
  - Throat irritation [None]
  - Tongue pruritus [None]
  - Pruritus [None]
  - Pruritus [None]
  - Increased upper airway secretion [None]
  - Intranasal paraesthesia [None]
